FAERS Safety Report 7590434-9 (Version None)
Quarter: 2011Q3

REPORT INFORMATION
  Report Type: 
  Country: None (occurrence: None)
  Receive Date: 20110705
  Receipt Date: 20091122
  Transmission Date: 20111222
  Serious: Yes (Other)
  Sender: FDA-Public Use
  Company Number: US-BAYER-200940286NA

PATIENT
  Age: 54 Year
  Sex: Male
  Weight: 81 kg

DRUGS (15)
  1. AMICAR [Concomitant]
     Indication: CORONARY ARTERY BYPASS
  2. NITROGLYCERIN [Concomitant]
     Route: 042
  3. PRILOSEC [Concomitant]
     Dosage: 20 MG, QD
     Route: 048
  4. AMICAR [Concomitant]
     Indication: AORTIC VALVE REPLACEMENT
     Dosage: 10 GRAMS
     Route: 042
     Dates: start: 20030212
  5. DDAVP [Concomitant]
     Dosage: 28 MICROGRAMS
     Route: 042
     Dates: start: 20030212
  6. PLATELETS [Concomitant]
     Dosage: 791 ML, ONCE
     Route: 042
  7. PLASMA [Concomitant]
     Dosage: 3740 ML, ONCE
     Route: 042
     Dates: start: 20030212
  8. HEPARIN [Concomitant]
     Dosage: 30,000 UNITS
     Route: 042
     Dates: start: 20030212
  9. DOPAMINE HCL [Concomitant]
     Route: 042
  10. GLUCOPHAGE [Concomitant]
     Indication: DIABETES MELLITUS
     Dosage: 500 MG, BID
     Route: 048
  11. GLUCOTROL [Concomitant]
     Indication: DIABETES MELLITUS
     Dosage: 10 MG, BID
     Route: 048
  12. RED BLOOD CELLS [Concomitant]
     Dosage: 4363 ML, ONCE
     Route: 042
     Dates: start: 20030212
  13. TRASYLOL [Suspect]
     Indication: AORTIC VALVE REPLACEMENT
     Route: 042
     Dates: start: 20030212
  14. LASIX [Concomitant]
     Dosage: 80 MG
     Route: 042
     Dates: start: 20030212
  15. INSULIN [Concomitant]
     Route: 042

REACTIONS (12)
  - RENAL FAILURE [None]
  - EMOTIONAL DISTRESS [None]
  - UNEVALUABLE EVENT [None]
  - ANHEDONIA [None]
  - ANXIETY [None]
  - PAIN [None]
  - RENAL IMPAIRMENT [None]
  - INJURY [None]
  - RENAL INJURY [None]
  - STRESS [None]
  - PSYCHIATRIC SYMPTOM [None]
  - FEAR [None]
